FAERS Safety Report 19061485 (Version 2)
Quarter: 2021Q3

REPORT INFORMATION
  Report Type: Spontaneous
  Country: US (occurrence: US)
  Receive Date: 20210325
  Receipt Date: 20210815
  Transmission Date: 20211014
  Serious: Yes (Other)
  Sender: FDA-Public Use
  Company Number: US-GILEAD-2021-0522288

PATIENT
  Sex: Male
  Weight: 97.07 kg

DRUGS (46)
  1. FENOFIBRATE. [Concomitant]
     Active Substance: FENOFIBRATE
  2. MECLIZINE HCL [Concomitant]
     Active Substance: MECLIZINE HYDROCHLORIDE
  3. LIVALO [Concomitant]
     Active Substance: PITAVASTATIN CALCIUM
  4. OSELTAMIVIR [Concomitant]
     Active Substance: OSELTAMIVIR
  5. TRIAMCINOLONE [Concomitant]
     Active Substance: TRIAMCINOLONE
  6. FAMOTIDINE. [Concomitant]
     Active Substance: FAMOTIDINE
  7. TRIMETHOPRIM SULFAMETHOXAZOLE [Concomitant]
     Active Substance: SULFAMETHOXAZOLE\TRIMETHOPRIM
  8. ONDANSETRON [Concomitant]
     Active Substance: ONDANSETRON
  9. HYDROCODONE [Concomitant]
     Active Substance: HYDROCODONE
  10. ASPIRIN [ACETYLSALICYLIC ACID] [Concomitant]
     Active Substance: ASPIRIN
  11. DULCOLAX [SODIUM PICOSULFATE] [Concomitant]
     Active Substance: SODIUM PICOSULFATE
  12. BACTRIM [Concomitant]
     Active Substance: SULFAMETHOXAZOLE\TRIMETHOPRIM
  13. LIDOCAINE. [Concomitant]
     Active Substance: LIDOCAINE
  14. BELVIQ [Concomitant]
     Active Substance: LORCASERIN HYDROCHLORIDE
  15. METFORMIN [Concomitant]
     Active Substance: METFORMIN HYDROCHLORIDE
  16. LEVAQUIN [Concomitant]
     Active Substance: LEVOFLOXACIN
  17. METRONIDAZOLE. [Concomitant]
     Active Substance: METRONIDAZOLE
  18. DIPRIVAN [Concomitant]
     Active Substance: PROPOFOL
  19. ATRIPLA [Suspect]
     Active Substance: EFAVIRENZ\EMTRICITABINE\TENOFOVIR DISOPROXIL FUMARATE
     Indication: HIV INFECTION
     Dosage: UNK
     Route: 048
     Dates: start: 20081031
  20. VIREAD [Suspect]
     Active Substance: TENOFOVIR DISOPROXIL FUMARATE
     Indication: HIV INFECTION
     Dosage: UNK
     Route: 065
     Dates: end: 2006
  21. SUSTIVA [Concomitant]
     Active Substance: EFAVIRENZ
  22. AMARYL [Concomitant]
     Active Substance: GLIMEPIRIDE
  23. ATORVASTATIN [Concomitant]
     Active Substance: ATORVASTATIN
  24. CONTRAVE [Concomitant]
     Active Substance: BUPROPION HYDROCHLORIDE\NALTREXONE HYDROCHLORIDE
  25. ROSUVASTATIN. [Concomitant]
     Active Substance: ROSUVASTATIN
  26. MUPIROCIN. [Concomitant]
     Active Substance: MUPIROCIN
  27. VALACYCLOVIR HYDROCHLORIDE. [Concomitant]
     Active Substance: VALACYCLOVIR HYDROCHLORIDE
  28. MORPHINE [Concomitant]
     Active Substance: MORPHINE
  29. MIRALAX [Concomitant]
     Active Substance: POLYETHYLENE GLYCOL 3350
  30. CLOTRIMAZOLE. [Concomitant]
     Active Substance: CLOTRIMAZOLE
  31. TRUVADA [Suspect]
     Active Substance: EMTRICITABINE\TENOFOVIR DISOPROXIL FUMARATE
     Indication: HIV INFECTION
     Dosage: UNK
     Route: 065
     Dates: start: 20080924, end: 20081021
  32. COMBIVIR [Concomitant]
     Active Substance: LAMIVUDINE\ZIDOVUDINE
  33. HEPARIN [Concomitant]
     Active Substance: HEPARIN SODIUM
  34. AZITHROMYCIN ANHYDROUS. [Concomitant]
     Active Substance: AZITHROMYCIN ANHYDROUS
  35. CHANTIX [Concomitant]
     Active Substance: VARENICLINE TARTRATE
  36. BENZONATATE. [Concomitant]
     Active Substance: BENZONATATE
  37. CEPHALEXIN [CEFALEXIN] [Concomitant]
     Active Substance: CEPHALEXIN
  38. FENTANYL. [Concomitant]
     Active Substance: FENTANYL
  39. BIKTARVY [Concomitant]
     Active Substance: BICTEGRAVIR SODIUM\EMTRICITABINE\TENOFOVIR ALAFENAMIDE FUMARATE
  40. GENVOYA [Concomitant]
     Active Substance: COBICISTAT\ELVITEGRAVIR\EMTRICITABINE\TENOFOVIR ALAFENAMIDE FUMARATE
  41. VICTOZA [Concomitant]
     Active Substance: LIRAGLUTIDE
  42. NOVOLOG [Concomitant]
     Active Substance: INSULIN ASPART
  43. KALETRA [Concomitant]
     Active Substance: LOPINAVIR\RITONAVIR
  44. CEFADROXIL. [Concomitant]
     Active Substance: CEFADROXIL
  45. PROVENTIL HFA [SALBUTAMOL] [Concomitant]
  46. DEXAMETHASONE. [Concomitant]
     Active Substance: DEXAMETHASONE

REACTIONS (9)
  - Emotional distress [Not Recovered/Not Resolved]
  - Bone density decreased [Not Recovered/Not Resolved]
  - Pain [Not Recovered/Not Resolved]
  - Osteoporosis [Unknown]
  - Protein urine present [Recovered/Resolved]
  - Patella fracture [Recovered/Resolved]
  - Anhedonia [Not Recovered/Not Resolved]
  - Anxiety [Not Recovered/Not Resolved]
  - Osteoarthritis [Not Recovered/Not Resolved]

NARRATIVE: CASE EVENT DATE: 20120320
